FAERS Safety Report 9125077 (Version 1)
Quarter: 2013Q1

REPORT INFORMATION
  Report Type: Spontaneous
  Country: US (occurrence: US)
  Receive Date: 20130121
  Receipt Date: 20130121
  Transmission Date: 20140127
  Serious: Yes (Other)
  Sender: FDA-Public Use
  Company Number: US-PURDUE-USA-2013-0097689

PATIENT
  Sex: Female

DRUGS (2)
  1. COLACE [Suspect]
     Indication: CONSTIPATION
     Dosage: 100 MG, QD PRN
     Route: 048
  2. ASPIRIN [Concomitant]
     Indication: ANTICOAGULANT THERAPY
     Dosage: 81 MG, SEE TEXT
     Route: 048

REACTIONS (1)
  - Hallucination [Recovered/Resolved]
